FAERS Safety Report 12515701 (Version 3)
Quarter: 2018Q4

REPORT INFORMATION
  Report Type: Report from Study
  Country: JP (occurrence: JP)
  Receive Date: 20160630
  Receipt Date: 20181030
  Transmission Date: 20190204
  Serious: Yes (Other)
  Sender: FDA-Public Use
  Company Number: JP-ASTELLAS-2009JP005632

PATIENT
  Age: 53 Year
  Sex: Female
  Weight: 40 kg

DRUGS (34)
  1. GASMOTIN [Concomitant]
     Active Substance: MOSAPRIDE CITRATE
     Route: 048
     Dates: start: 20080509
  2. PLETAAL [Concomitant]
     Active Substance: CILOSTAZOL
     Indication: PROPHYLAXIS
     Route: 048
     Dates: end: 20100521
  3. HYPEN (INDAPAMIDE) [Concomitant]
     Active Substance: INDAPAMIDE
     Indication: BACK PAIN
     Route: 048
     Dates: start: 20081002, end: 20081016
  4. ZYLORIC [Concomitant]
     Active Substance: ALLOPURINOL
     Route: 048
     Dates: start: 20100702
  5. LAMISIL [Concomitant]
     Active Substance: TERBINAFINE HYDROCHLORIDE
     Indication: DERMATOPHYTOSIS OF NAIL
     Dosage: UNK UNK, UNKNOWN FREQ.
     Route: 061
  6. MEDROL [Concomitant]
     Active Substance: METHYLPREDNISOLONE
     Route: 048
     Dates: start: 20070927, end: 20080508
  7. MEDROL [Concomitant]
     Active Substance: METHYLPREDNISOLONE
     Route: 048
     Dates: start: 20080509, end: 20081015
  8. GOSHAJINKIGAN [Concomitant]
     Active Substance: HERBALS
     Indication: OEDEMA
     Route: 048
     Dates: start: 20081002, end: 20081016
  9. HALFDIGOXIN [Concomitant]
     Active Substance: DIGOXIN
     Indication: CARDIAC FAILURE
     Dosage: 0.125 MG, ONCE DAILY
     Route: 048
     Dates: start: 20110526
  10. EVISTA [Concomitant]
     Active Substance: RALOXIFENE HYDROCHLORIDE
     Indication: PROPHYLAXIS
     Route: 048
     Dates: end: 20080508
  11. ALDACTONE A [Concomitant]
     Active Substance: SPIRONOLACTONE
     Indication: PRODUCT USED FOR UNKNOWN INDICATION
     Route: 048
     Dates: start: 20080627, end: 20090405
  12. GASTER [Concomitant]
     Active Substance: FAMOTIDINE
     Indication: PROPHYLAXIS
     Route: 048
  13. SAIREI-TO [Concomitant]
     Active Substance: UNSPECIFIED INGREDIENT
     Indication: OEDEMA
     Route: 048
     Dates: end: 20080508
  14. SAIREI-TO [Concomitant]
     Active Substance: UNSPECIFIED INGREDIENT
     Route: 048
     Dates: start: 20080509, end: 20080626
  15. LASIX [Concomitant]
     Active Substance: FUROSEMIDE
     Indication: OEDEMA
     Route: 048
     Dates: start: 20080118, end: 20101208
  16. PROCYLIN [Concomitant]
     Active Substance: BERAPROST SODIUM
     Indication: THROMBOPHLEBITIS
     Route: 048
     Dates: start: 20080509, end: 20100520
  17. PROCYLIN [Concomitant]
     Active Substance: BERAPROST SODIUM
     Route: 048
     Dates: start: 20100701
  18. LAMISIL [Concomitant]
     Active Substance: TERBINAFINE HYDROCHLORIDE
     Indication: TINEA INFECTION
     Dosage: SEVERAL TIMES DAILY
     Route: 061
     Dates: start: 20090511, end: 20090817
  19. MEDROL [Concomitant]
     Active Substance: METHYLPREDNISOLONE
     Route: 048
     Dates: start: 20081016, end: 20100519
  20. SAIREI-TO [Concomitant]
     Active Substance: UNSPECIFIED INGREDIENT
     Route: 048
     Dates: start: 20100909, end: 20121220
  21. ZYLORIC [Concomitant]
     Active Substance: ALLOPURINOL
     Indication: PROPHYLAXIS
     Route: 048
     Dates: start: 20091218, end: 20100701
  22. MEDROL [Concomitant]
     Active Substance: METHYLPREDNISOLONE
     Route: 048
     Dates: start: 20100520
  23. PL [Concomitant]
     Active Substance: ACETAMINOPHEN\CAFFEINE\PROMETHAZINE\SALICYLAMIDE
     Route: 048
     Dates: start: 201004, end: 201004
  24. LOXONIN [Concomitant]
     Active Substance: LOXOPROFEN SODIUM
     Indication: PHARYNGITIS
     Route: 048
     Dates: start: 20081016, end: 20081021
  25. TACROLIMUS. [Suspect]
     Active Substance: TACROLIMUS
     Indication: LUPUS NEPHRITIS
     Route: 048
     Dates: start: 20070927
  26. MEDROL [Concomitant]
     Active Substance: METHYLPREDNISOLONE
     Indication: LUPUS NEPHRITIS
     Route: 048
  27. GASMOTIN [Concomitant]
     Active Substance: MOSAPRIDE CITRATE
     Indication: PRODUCT USED FOR UNKNOWN INDICATION
     Route: 048
     Dates: end: 20080508
  28. LASIX [Concomitant]
     Active Substance: FUROSEMIDE
     Indication: OEDEMA
     Route: 048
     Dates: start: 20110526
  29. CLARITH [Concomitant]
     Active Substance: CLARITHROMYCIN
     Indication: CYSTITIS
     Route: 048
     Dates: start: 20081002, end: 20081016
  30. PREMINENT [Concomitant]
     Active Substance: HYDROCHLOROTHIAZIDE\LOSARTAN POTASSIUM
     Indication: PRODUCT USED FOR UNKNOWN INDICATION
     Route: 048
     Dates: start: 20101209
  31. ALOSENN [Concomitant]
     Active Substance: SENNA LEAF
     Indication: PRODUCT USED FOR UNKNOWN INDICATION
     Route: 048
  32. CLARITH [Concomitant]
     Active Substance: CLARITHROMYCIN
     Indication: BACK PAIN
  33. PL [Concomitant]
     Active Substance: ACETAMINOPHEN\CAFFEINE\PROMETHAZINE\SALICYLAMIDE
     Indication: PHARYNGITIS
     Route: 048
     Dates: start: 20081016, end: 20081021
  34. ZYLORIC [Concomitant]
     Active Substance: ALLOPURINOL
     Indication: HYPERURICAEMIA
     Route: 048
     Dates: start: 20090406, end: 20091217

REACTIONS (11)
  - Tinea infection [Recovering/Resolving]
  - Dermatophytosis of nail [Unknown]
  - Cystitis [Recovered/Resolved]
  - Haemorrhage subcutaneous [Recovering/Resolving]
  - Back pain [Recovering/Resolving]
  - Hyperuricaemia [Recovering/Resolving]
  - Thrombophlebitis [Not Recovered/Not Resolved]
  - Cardiac failure [Not Recovered/Not Resolved]
  - Atrophic vulvovaginitis [Recovering/Resolving]
  - Oedema [Not Recovered/Not Resolved]
  - Pharyngitis [Recovering/Resolving]

NARRATIVE: CASE EVENT DATE: 20080508
